FAERS Safety Report 13268108 (Version 1)
Quarter: 2017Q1

REPORT INFORMATION
  Report Type: Spontaneous
  Country: US (occurrence: US)
  Receive Date: 20170224
  Receipt Date: 20170224
  Transmission Date: 20170428
  Serious: No
  Sender: FDA-Public Use
  Company Number: US-TEVA-728001ACC

PATIENT
  Sex: Male
  Weight: 79.45 kg

DRUGS (1)
  1. BUPRENORPHINE. [Suspect]
     Active Substance: BUPRENORPHINE
     Indication: DYSTONIA

REACTIONS (4)
  - Musculoskeletal stiffness [Unknown]
  - Off label use [Unknown]
  - Somnambulism [Unknown]
  - Drug ineffective for unapproved indication [Unknown]
